FAERS Safety Report 15153034 (Version 2)
Quarter: 2018Q3

REPORT INFORMATION
  Report Type: Spontaneous
  Country: US (occurrence: US)
  Receive Date: 20180717
  Receipt Date: 20180801
  Transmission Date: 20181010
  Serious: Yes (Hospitalization)
  Sender: FDA-Public Use
  Company Number: US-PFIZER INC-2018286127

PATIENT
  Age: 64 Year
  Sex: Male
  Weight: 64.41 kg

DRUGS (4)
  1. AMIKACIN SULFATE. [Suspect]
     Active Substance: AMIKACIN SULFATE
     Indication: BRONCHIECTASIS
     Dosage: 500 MG, (1 LITER IN THE MORNING AND 1 LITER AT NIGHT)
     Route: 055
  2. AMIKACIN SULFATE. [Suspect]
     Active Substance: AMIKACIN SULFATE
     Dosage: 500 MG, 2X/DAY, (11+ 500MG TWICE DAILY)
     Dates: start: 201805, end: 20180611
  3. PLAVIX [Concomitant]
     Active Substance: CLOPIDOGREL BISULFATE
     Indication: ANTICOAGULANT THERAPY
     Dosage: UNK
  4. PLAVIX [Concomitant]
     Active Substance: CLOPIDOGREL BISULFATE
     Indication: TRANSIENT ISCHAEMIC ATTACK

REACTIONS (5)
  - Product use in unapproved indication [Unknown]
  - Agitation [Recovering/Resolving]
  - Irritability [Recovering/Resolving]
  - Disorientation [Recovering/Resolving]
  - Contusion [Recovering/Resolving]
